FAERS Safety Report 16463441 (Version 1)
Quarter: 2019Q2

REPORT INFORMATION
  Report Type: Spontaneous
  Country: JP (occurrence: JP)
  Receive Date: 20190621
  Receipt Date: 20190621
  Transmission Date: 20190711
  Serious: Yes (Hospitalization)
  Sender: FDA-Public Use
  Company Number: JP-ELI_LILLY_AND_COMPANY-JP201906005436

PATIENT
  Age: 28 Year
  Sex: Female

DRUGS (9)
  1. DULOXETINE HYDROCHLORIDE. [Suspect]
     Active Substance: DULOXETINE HYDROCHLORIDE
     Indication: OSTEOARTHRITIS
     Dosage: 20 MG, DAILY
     Route: 048
     Dates: start: 201904, end: 20190610
  2. DOMPERIDONE [Concomitant]
     Active Substance: DOMPERIDONE
     Dosage: UNK
     Dates: end: 20190610
  3. CARERAM [Concomitant]
     Active Substance: IGURATIMOD
     Dosage: UNK
     Dates: end: 20190610
  4. LOXOPROFEN [Concomitant]
     Active Substance: LOXOPROFEN
     Dosage: UNK
     Dates: end: 20190610
  5. ITOPRIDE [Concomitant]
     Active Substance: ITOPRIDE
     Dosage: UNK
     Dates: end: 20190610
  6. AMOXICILLIN. [Suspect]
     Active Substance: AMOXICILLIN
     Indication: TONSILLITIS
     Dosage: UNK
     Route: 048
     Dates: start: 20190606, end: 20190610
  7. OXETHAZAINE [Concomitant]
     Active Substance: OXETHAZAINE
     Dosage: UNK
     Dates: end: 20190610
  8. ETIZOLAM [Concomitant]
     Active Substance: ETIZOLAM
     Dosage: UNK
     Dates: end: 20190610
  9. INFREE [Concomitant]
     Active Substance: INDOMETHACIN FARNESIL
     Dosage: UNK
     Dates: end: 20190610

REACTIONS (1)
  - Colitis [Recovering/Resolving]

NARRATIVE: CASE EVENT DATE: 20190607
